FAERS Safety Report 8621907-5 (Version None)
Quarter: 2012Q3

REPORT INFORMATION
  Report Type: 
  Country: None (occurrence: None)
  Receive Date: 20120822
  Receipt Date: 20120822
  Transmission Date: 20120928
  Serious: Yes (Life-Threatening, Hospitalization, Disabling, Other)
  Sender: FDA-Public Use
  Company Number: None

PATIENT
  Age: 69 Year
  Sex: Male
  Weight: 108.8633 kg

DRUGS (1)
  1. DABIGATRAN ETEXILATE 150 MG BOEHRINGER INGELHEIM PHARMA [Suspect]
     Indication: ATRIAL FIBRILLATION
     Dosage: 150 MG BID PO
     Route: 048
     Dates: start: 20120110, end: 20120706

REACTIONS (10)
  - EMBOLIC STROKE [None]
  - PERIPHERAL EMBOLISM [None]
  - COLLATERAL CIRCULATION [None]
  - AORTIC EMBOLUS [None]
  - DECREASED APPETITE [None]
  - VOMITING [None]
  - RENAL EMBOLISM [None]
  - INCISION SITE INFECTION [None]
  - PYREXIA [None]
  - MESENTERIC ARTERY EMBOLISM [None]
